FAERS Safety Report 8125841-9 (Version None)
Quarter: 2012Q1

REPORT INFORMATION
  Report Type: 
  Country: None (occurrence: None)
  Receive Date: 20120209
  Receipt Date: 20120203
  Transmission Date: 20120608
  Serious: Yes (Other)
  Sender: FDA-Public Use
  Company Number: US-ELI_LILLY_AND_COMPANY-US201202001630

PATIENT
  Sex: Male

DRUGS (3)
  1. CIALIS [Suspect]
     Dosage: 20 MG, OTHER
     Dates: start: 20110101
  2. CIALIS [Suspect]
     Indication: PENIS DISORDER
     Dosage: 20 MG, UNK
     Dates: start: 20100101
  3. CIALIS [Suspect]
     Dosage: 5 MG, UNK
     Dates: start: 20110101, end: 20110101

REACTIONS (5)
  - BURNING SENSATION [None]
  - OFF LABEL USE [None]
  - SURGERY [None]
  - PROSTATIC SPECIFIC ANTIGEN INCREASED [None]
  - HYPERTROPHY [None]
